FAERS Safety Report 15135080 (Version 2)
Quarter: 2018Q3

REPORT INFORMATION
  Report Type: Report from Study
  Country: CA (occurrence: CA)
  Receive Date: 20180712
  Receipt Date: 20180904
  Transmission Date: 20181010
  Serious: Yes (Other)
  Sender: FDA-Public Use
  Company Number: CA-JNJFOC-20180711972

PATIENT
  Age: 55 Year
  Sex: Male
  Weight: 98.88 kg

DRUGS (1)
  1. SIMPONI [Suspect]
     Active Substance: GOLIMUMAB
     Indication: COLITIS ULCERATIVE
     Dosage: STRENGTH = 50 MG
     Route: 058
     Dates: start: 20180626

REACTIONS (2)
  - Haematochezia [Recovering/Resolving]
  - Frequent bowel movements [Not Recovered/Not Resolved]

NARRATIVE: CASE EVENT DATE: 201806
